FAERS Safety Report 20024861 (Version 2)
Quarter: 2022Q1

REPORT INFORMATION
  Report Type: Report from Study
  Country: US (occurrence: US)
  Receive Date: 20211102
  Receipt Date: 20220114
  Transmission Date: 20220423
  Serious: Yes (Death, Hospitalization)
  Sender: FDA-Public Use
  Company Number: US-KARYOPHARM-2021KPT001359

PATIENT
  Age: 72 Year
  Sex: Female
  Weight: 50.7 kg

DRUGS (3)
  1. SELINEXOR [Suspect]
     Active Substance: SELINEXOR
     Indication: Acute myeloid leukaemia
     Dosage: 100 MG, SINGLE
     Route: 048
     Dates: start: 20210812, end: 20211025
  2. VENETOCLAX [Suspect]
     Active Substance: VENETOCLAX
     Indication: Acute myeloid leukaemia
     Dosage: 100 MG, SINGLE
     Route: 048
     Dates: start: 20210812, end: 20210812
  3. VENETOCLAX [Suspect]
     Active Substance: VENETOCLAX
     Dosage: 400 MG, SINGLE
     Route: 048
     Dates: end: 20211025

REACTIONS (2)
  - Haemorrhage intracranial [Fatal]
  - Febrile neutropenia [Not Recovered/Not Resolved]

NARRATIVE: CASE EVENT DATE: 20211025
